FAERS Safety Report 26176337 (Version 1)
Quarter: 2025Q4

REPORT INFORMATION
  Report Type: Spontaneous
  Country: EU (occurrence: EU)
  Receive Date: 20251218
  Receipt Date: 20251218
  Transmission Date: 20260118
  Serious: Yes (Hospitalization)
  Sender: PURDUE
  Company Number: EU-PURDUE-USA-2025-0323109

PATIENT
  Age: 38 Year
  Sex: Male

DRUGS (4)
  1. MORPHINE SULFATE [Suspect]
     Active Substance: MORPHINE SULFATE
     Indication: Product used for unknown indication
     Dosage: IMV
     Route: 065
     Dates: start: 20250915, end: 20250915
  2. COCAINE [Suspect]
     Active Substance: COCAINE
     Indication: Product used for unknown indication
     Dosage: UNK
     Route: 045
     Dates: start: 20250915, end: 20250915
  3. CANNABIS SATIVA SUBSP. INDICA TOP [Suspect]
     Active Substance: CANNABIS SATIVA SUBSP. INDICA TOP
     Indication: Product used for unknown indication
     Dosage: UNK
     Route: 065
     Dates: end: 20250915
  4. HEROIN [Suspect]
     Active Substance: DIAMORPHINE
     Indication: Product used for unknown indication
     Dosage: UNK
     Route: 065
     Dates: start: 20250913, end: 20250913

REACTIONS (6)
  - Substance use disorder [Not Recovered/Not Resolved]
  - Loss of consciousness [Recovered/Resolved]
  - Miosis [Recovering/Resolving]
  - Oxygen saturation decreased [Recovered/Resolved]
  - Sensory loss [Recovered/Resolved]
  - Tachycardia [Recovered/Resolved]

NARRATIVE: CASE EVENT DATE: 20250915
